FAERS Safety Report 12836760 (Version 1)
Quarter: 2016Q4

REPORT INFORMATION
  Report Type: Spontaneous
  Country: AU (occurrence: AU)
  Receive Date: 20161011
  Receipt Date: 20161011
  Transmission Date: 20170207
  Serious: Yes (Hospitalization, Other)
  Sender: FDA-Public Use
  Company Number: AU-IMPAX LABORATORIES, INC-2016-IPXL-01346

PATIENT
  Age: 29 Year
  Sex: Female

DRUGS (1)
  1. DIVALPROEX SODIUM ER [Suspect]
     Active Substance: DIVALPROEX SODIUM
     Indication: EPILEPSY
     Dosage: 200 MG, 2 /DAY
     Route: 065

REACTIONS (6)
  - Myoglobinuria [Unknown]
  - Myopathy [Unknown]
  - Depression [Unknown]
  - Rhabdomyolysis [Recovered/Resolved]
  - Eyelid ptosis [Unknown]
  - Drug-disease interaction [Unknown]
